FAERS Safety Report 8266175-1 (Version None)
Quarter: 2012Q2

REPORT INFORMATION
  Report Type: 
  Country: None (occurrence: None)
  Receive Date: 20120406
  Receipt Date: 20120328
  Transmission Date: 20120825
  Serious: Yes (Other)
  Sender: FDA-Public Use
  Company Number: PHHY2011CA098514

PATIENT
  Sex: Male

DRUGS (1)
  1. CYCLOSPORINE [Suspect]
     Route: 064

REACTIONS (3)
  - FOETAL GROWTH RESTRICTION [None]
  - HEAD CIRCUMFERENCE ABNORMAL [None]
  - FOETAL EXPOSURE DURING PREGNANCY [None]
